FAERS Safety Report 18372426 (Version 5)
Quarter: 2021Q4

REPORT INFORMATION
  Report Type: Report from Study
  Country: US (occurrence: US)
  Receive Date: 20201012
  Receipt Date: 20211116
  Transmission Date: 20220303
  Serious: Yes (Other)
  Sender: FDA-Public Use
  Company Number: US-SHIRE-US202033234

PATIENT
  Age: 41 Year
  Sex: Male

DRUGS (1)
  1. RECOMBINATE [Suspect]
     Active Substance: ANTIHEMOPHILIC FACTOR, HUMAN RECOMBINANT
     Indication: Product used for unknown indication
     Dosage: 4000 INTERNATIONAL UNIT
     Route: 042

REACTIONS (6)
  - Haemarthrosis [Unknown]
  - Spontaneous haemorrhage [Unknown]
  - Haemorrhage [Recovered/Resolved]
  - Animal attack [Unknown]
  - Dyspepsia [Unknown]
  - Ulcer [Unknown]

NARRATIVE: CASE EVENT DATE: 20200910
